FAERS Safety Report 8066566-8 (Version None)
Quarter: 2012Q1

REPORT INFORMATION
  Report Type: 
  Country: None (occurrence: None)
  Receive Date: 20120124
  Receipt Date: 20120117
  Transmission Date: 20120608
  Serious: No
  Sender: FDA-Public Use
  Company Number: PHEH2012US001839

PATIENT
  Sex: Male
  Weight: 79.365 kg

DRUGS (2)
  1. TASIGNA [Suspect]
     Dosage: 1CAPSULE, TWICE A DAY
     Route: 048
  2. RITALIN [Concomitant]
     Dosage: 5 MG, UNK

REACTIONS (1)
  - RASH [None]
